FAERS Safety Report 10161963 (Version 1)
Quarter: 2014Q2

REPORT INFORMATION
  Report Type: Spontaneous
  Country: US (occurrence: None)
  Receive Date: 20140507
  Receipt Date: 20140507
  Transmission Date: 20141212
  Serious: Yes (Congenital Anomaly)
  Sender: FDA-Public Use
  Company Number: 2014AP002826

PATIENT
  Sex: Female

DRUGS (1)
  1. PAROXETINE HYDROCHLORIDE (PAROXETINE) UNKNOWN [Suspect]
     Route: 064

REACTIONS (7)
  - Transposition of the great vessels [None]
  - Patent ductus arteriosus [None]
  - Quality of life decreased [None]
  - Pain [None]
  - Anxiety [None]
  - Ventricular septal defect [None]
  - Foetal exposure during pregnancy [None]
